FAERS Safety Report 9932128 (Version 1)
Quarter: 2014Q1

REPORT INFORMATION
  Report Type: Spontaneous
  Country: US (occurrence: US)
  Receive Date: 20140228
  Receipt Date: 20140228
  Transmission Date: 20141002
  Serious: No
  Sender: FDA-Public Use
  Company Number: US-ABBVIE-14P-163-1192293-00

PATIENT
  Sex: Female
  Weight: 53.57 kg

DRUGS (1)
  1. ANDROGEL [Suspect]
     Indication: EXPOSURE VIA PARTNER

REACTIONS (2)
  - Night sweats [Recovered/Resolved]
  - Accidental exposure to product [Recovered/Resolved]
